FAERS Safety Report 18963904 (Version 3)
Quarter: 2021Q1

REPORT INFORMATION
  Report Type: Spontaneous
  Country: AT (occurrence: AT)
  Receive Date: 20210303
  Receipt Date: 20210324
  Transmission Date: 20210420
  Serious: Yes (Other)
  Sender: FDA-Public Use
  Company Number: AT-BRISTOL-MYERS SQUIBB COMPANY-BMS-2021-019212

PATIENT
  Sex: Female
  Weight: 59 kg

DRUGS (9)
  1. IBANDRONIC ACID. [Concomitant]
     Active Substance: IBANDRONIC ACID
     Indication: PRODUCT USED FOR UNKNOWN INDICATION
     Dosage: 3 MILLIGRAM
     Route: 065
     Dates: start: 201702
  2. OLEOVIT [COLECALCIFEROL?CHOLESTERIN] [Concomitant]
     Indication: PRODUCT USED FOR UNKNOWN INDICATION
     Dosage: 30 DROPS PER WEEK
     Route: 065
     Dates: start: 201502
  3. MEFAN [Concomitant]
     Indication: PRODUCT USED FOR UNKNOWN INDICATION
     Dosage: 1 TABLET WHEN NEEDED
     Route: 065
     Dates: start: 201302
  4. AZOPT [Concomitant]
     Active Substance: BRINZOLAMIDE
     Indication: PRODUCT USED FOR UNKNOWN INDICATION
     Dosage: 1 DROP DAILY
     Route: 065
     Dates: start: 202002
  5. TRITTICO [Suspect]
     Active Substance: TRAZODONE HYDROCHLORIDE
     Indication: PRODUCT USED FOR UNKNOWN INDICATION
     Dosage: 1 TABLET DAILY
     Route: 065
     Dates: start: 201902
  6. ELIQUIS [Suspect]
     Active Substance: APIXABAN
     Indication: CEREBROVASCULAR ACCIDENT PROPHYLAXIS
     Dosage: 10 MILLIGRAM 1 DAY
     Route: 065
     Dates: start: 201702
  7. CANDESARCOMP [Suspect]
     Active Substance: CANDESARTAN CILEXETIL\HYDROCHLOROTHIAZIDE
     Indication: PRODUCT USED FOR UNKNOWN INDICATION
     Dosage: 1 TABLET DAILY
     Route: 065
     Dates: start: 201902
  8. MAGNOSOLV [Concomitant]
     Active Substance: MAGNESIUM CARBONATE\MAGNESIUM OXIDE
     Indication: PRODUCT USED FOR UNKNOWN INDICATION
     Dosage: ONCE DAILY
     Route: 065
     Dates: start: 201502
  9. ROSUVALAN [Concomitant]
     Indication: PRODUCT USED FOR UNKNOWN INDICATION
     Dosage: 1 TABLET DAILY
     Route: 065
     Dates: start: 201702

REACTIONS (16)
  - Underweight [Not Recovered/Not Resolved]
  - Atrial fibrillation [Unknown]
  - Nervousness [Unknown]
  - Dysuria [Unknown]
  - Micturition urgency [Unknown]
  - Night sweats [Not Recovered/Not Resolved]
  - Tremor [Unknown]
  - Osteoporosis [Unknown]
  - Varicose vein [Unknown]
  - Dizziness [Unknown]
  - Abdominal pain [Unknown]
  - Peripheral coldness [Not Recovered/Not Resolved]
  - Facial paralysis [Unknown]
  - Abdominal distension [Unknown]
  - Constipation [Not Recovered/Not Resolved]
  - Cataract [Unknown]

NARRATIVE: CASE EVENT DATE: 201902
